FAERS Safety Report 6828782 (Version 5)
Quarter: 2015Q3

REPORT INFORMATION
  Report Type: Report from Study
  Country: FR (occurrence: FR)
  Receive Date: 20081201
  Receipt Date: 20150729
  Transmission Date: 20151125
  Serious: Yes (Death, Hospitalization, Other)
  Sender: FDA-Public Use
  Company Number: FR-PFIZER INC-2008100575

PATIENT
  Age: 81 Year
  Sex: Female

DRUGS (11)
  1. DAFALGAN [Concomitant]
     Active Substance: ACETAMINOPHEN
     Dosage: UNK
  2. LYRICA [Suspect]
     Active Substance: PREGABALIN
     Indication: NEURALGIA
     Dosage: 50 MG, DAILY
     Route: 048
     Dates: start: 20081108, end: 20081115
  3. LEVOTHYROXINE. [Concomitant]
     Active Substance: LEVOTHYROXINE
  4. HYDROCHLOROTHIAZIDE. [Suspect]
     Active Substance: HYDROCHLOROTHIAZIDE
     Dosage: UNK
  5. KARDEGIC [Concomitant]
     Active Substance: ASPIRIN LYSINE
  6. MICARDISPLUS [Suspect]
     Active Substance: HYDROCHLOROTHIAZIDE\TELMISARTAN
     Dosage: 80 MG/12.5 MG TABLET, 1 DF, DAILY
     Dates: start: 20080506, end: 20081120
  7. LYRICA [Suspect]
     Active Substance: PREGABALIN
     Dosage: 50 MG, 2X/DAY
     Route: 048
     Dates: start: 20081115, end: 20081117
  8. DIANTAVIC [Suspect]
     Active Substance: ACETAMINOPHEN\PROPOXYPHENE
     Indication: PAIN
     Dosage: ONE TO TWO CAPSULES WHEN NEEDED
     Route: 048
     Dates: start: 20081108, end: 20081117
  9. CRESTOR [Concomitant]
     Active Substance: ROSUVASTATIN CALCIUM
  10. KERLONE [Concomitant]
     Active Substance: BETAXOLOL HYDROCHLORIDE
  11. RIVOTRIL [Concomitant]
     Active Substance: CLONAZEPAM
     Dosage: UNK

REACTIONS (7)
  - Confusional state [Fatal]
  - Coma [Unknown]
  - Delirium [Unknown]
  - Agitation [Unknown]
  - Blood creatinine increased [Unknown]
  - Hyponatraemia [Fatal]
  - Blood creatine phosphokinase increased [Unknown]

NARRATIVE: CASE EVENT DATE: 200811
